FAERS Safety Report 4505400-7 (Version None)
Quarter: 2004Q4

REPORT INFORMATION
  Report Type: 
  Country: None (occurrence: None)
  Receive Date: 20041018
  Receipt Date: 20040708
  Transmission Date: 20050328
  Serious: Yes (Other)
  Sender: FDA-Public Use
  Company Number: SUS1-2004-00410

PATIENT
  Age: 43 Year
  Sex: Male

DRUGS (6)
  1. PROAMATINE [Suspect]
     Indication: HYPOTENSION
     Dosage: 5 MG, 3X/DAY; TID,
  2. FLUDROCORTISONE ACETATE [Suspect]
  3. RAPAMUNE [Concomitant]
  4. PROGRAF [Concomitant]
  5. PREDNISOLONE [Concomitant]
  6. XALATAN [Concomitant]

REACTIONS (1)
  - INTRAOCULAR PRESSURE INCREASED [None]
